FAERS Safety Report 23503102 (Version 1)
Quarter: 2024Q1

REPORT INFORMATION
  Report Type: Spontaneous
  Country: US (occurrence: US)
  Receive Date: 20240208
  Receipt Date: 20240208
  Transmission Date: 20240409
  Serious: No
  Sender: FDA-Public Use
  Company Number: US-INTRA-CELLULAR THERAPIES, INC.-2023ICT01698

PATIENT
  Sex: Female

DRUGS (3)
  1. CAPLYTA [Suspect]
     Active Substance: LUMATEPERONE
     Indication: Bipolar disorder
     Dosage: 42 MG
  2. KLONOPIN [Concomitant]
     Active Substance: CLONAZEPAM
  3. UNSPECIFIED SELECTIVE SEROTONIN REUPTAKE INHIBITOR [Concomitant]

REACTIONS (1)
  - Liver function test increased [Recovering/Resolving]
